FAERS Safety Report 6614464-6 (Version None)
Quarter: 2010Q1

REPORT INFORMATION
  Report Type: 
  Country: None (occurrence: None)
  Receive Date: 20100304
  Receipt Date: 20100304
  Transmission Date: 20100710
  Serious: Yes (Disabling, Other)
  Sender: FDA-Public Use
  Company Number: None

PATIENT
  Sex: Female
  Weight: 59.8748 kg

DRUGS (1)
  1. KEPPRA [Suspect]
     Indication: BIPOLAR DISORDER
     Dosage: 500 MG. 2 PER DAY PO
     Route: 048
     Dates: start: 20090415, end: 20091115

REACTIONS (1)
  - TARDIVE DYSKINESIA [None]
